FAERS Safety Report 8199600-5 (Version None)
Quarter: 2012Q1

REPORT INFORMATION
  Report Type: 
  Country: None (occurrence: None)
  Receive Date: 20120310
  Receipt Date: 20120227
  Transmission Date: 20120608
  Serious: Yes (Other)
  Sender: FDA-Public Use
  Company Number: US-BRISTOL-MYERS SQUIBB COMPANY-16421976

PATIENT
  Age: 67 Year
  Sex: Female
  Weight: 93 kg

DRUGS (9)
  1. PHENAZOPYRIDINE HCL TAB [Suspect]
     Dosage: IF NEEDED
  2. LEVOTHYROXINE SODIUM [Suspect]
  3. CEFTRIAXON [Interacting]
     Indication: URINARY TRACT INFECTION
     Route: 030
  4. CITALOPRAM HYDROBROMIDE [Suspect]
  5. WARFARIN SODIUM [Interacting]
     Dosage: 1 DF: 52.5-54.5MG ALSO 7.5MG/DAY
     Dates: start: 20020101
  6. CEFUROXIME [Suspect]
  7. OMEPRAZOLE [Suspect]
  8. GEMFIBROZIL [Suspect]
  9. SIMVASTATIN [Suspect]

REACTIONS (2)
  - INTERNATIONAL NORMALISED RATIO INCREASED [None]
  - DRUG INTERACTION [None]
